FAERS Safety Report 18329407 (Version 2)
Quarter: 2023Q4

REPORT INFORMATION
  Report Type: Report from Study
  Country: CA (occurrence: CA)
  Receive Date: 20200930
  Receipt Date: 20231107
  Transmission Date: 20240110
  Serious: Yes (Hospitalization, Other)
  Sender: FDA-Public Use
  Company Number: None

PATIENT
  Age: 53 Year
  Sex: Male

DRUGS (17)
  1. ATORVASTATIN [Suspect]
     Active Substance: ATORVASTATIN
     Indication: Product used for unknown indication
  2. METFORMIN HYDROCHLORIDE [Suspect]
     Active Substance: METFORMIN HYDROCHLORIDE
     Indication: Product used for unknown indication
     Dosage: FREQUENCY: 2 EVERY 1 DAYS
     Route: 048
  3. SANDOSTATIN [Suspect]
     Active Substance: OCTREOTIDE ACETATE
     Indication: Acromegaly
     Dosage: FREQUENCY: 1 EVERY 1 MONTHS
     Route: 030
  4. BISOPROLOL FUMARATE [Concomitant]
     Active Substance: BISOPROLOL FUMARATE
     Dosage: FREQUENCY: 1 EVERY 1 DAYS
  5. BOSENTAN [Concomitant]
     Active Substance: BOSENTAN
  6. PERINDOPRIL [Concomitant]
     Active Substance: PERINDOPRIL
     Dosage: FREQUENCY: 1 EVERY 1 DAYS
     Route: 048
  7. DOSTINEX [Concomitant]
     Active Substance: CABERGOLINE
     Route: 048
  8. FUROSEMIDE [Concomitant]
     Active Substance: FUROSEMIDE
  9. METFORMIN [Concomitant]
     Active Substance: METFORMIN HYDROCHLORIDE
     Dosage: FREQUENCY: 2 EVERY 1 DAYS
  10. SOMAVERT [Concomitant]
     Active Substance: PEGVISOMANT
     Dosage: DOSAGE FORM: POWDER FOR SOLUTION SUBCUTANEOUS
     Route: 058
  11. TAMSULOSIN HYDROCHLORIDE [Concomitant]
     Active Substance: TAMSULOSIN HYDROCHLORIDE
     Dosage: FREQUENCY: 1 EVERY 1 DAYS
  12. PERINDOPRIL ARGININE [Concomitant]
     Active Substance: PERINDOPRIL ARGININE
     Indication: Product used for unknown indication
     Dosage: TABLET (ORALLY DISINTEGRATING), 1 EVERY 1 DAYS
     Route: 048
  13. PERINDOPRIL ARGININE [Concomitant]
     Active Substance: PERINDOPRIL ARGININE
     Indication: Product used for unknown indication
     Dosage: 1 EVERY 1 DAYS
     Route: 048
  14. SANDOSTATIN [Suspect]
     Active Substance: OCTREOTIDE ACETATE
     Indication: Acromegaly
     Route: 030
  15. SANDOSTATIN [Suspect]
     Active Substance: OCTREOTIDE ACETATE
     Indication: Acromegaly
     Dosage: FREQUENCY: 3 EVERY 1 DAYS
     Route: 058
  16. PERINDOPRIL [Concomitant]
     Active Substance: PERINDOPRIL
     Dosage: FREQUENCY: 1 EVERY 1 DAYS
     Route: 048
  17. ATORVASTATIN [Suspect]
     Active Substance: ATORVASTATIN
     Indication: Product used for unknown indication
     Dosage: 1 EVERY 1 DAYS

REACTIONS (25)
  - Abdominal distension [Recovered/Resolved]
  - Blood pressure increased [Recovered/Resolved]
  - Blood pressure fluctuation [Recovered/Resolved]
  - Blister [Recovered/Resolved]
  - Blood cholesterol abnormal [Recovered/Resolved]
  - Therapeutic response decreased [Unknown]
  - Renal haematoma [Recovered/Resolved]
  - Needle issue [Unknown]
  - Lactose intolerance [Unknown]
  - Insulin-like growth factor increased [Recovered/Resolved]
  - Injection site erosion [Recovered/Resolved]
  - Heart rate decreased [Recovered/Resolved]
  - Headache [Recovered/Resolved]
  - Gastroenteritis viral [Recovered/Resolved]
  - Flatulence [Recovered/Resolved]
  - Fatigue [Recovered/Resolved]
  - Faeces soft [Recovered/Resolved]
  - Erythema [Recovered/Resolved]
  - Dyspnoea exertional [Recovered/Resolved]
  - Diarrhoea [Recovered/Resolved]
  - Arthralgia [Recovered/Resolved]
  - Injection site injury [Recovered/Resolved]
  - Pain [Recovered/Resolved]
  - Product dispensing error [Recovered/Resolved]
  - Inappropriate schedule of product administration [Recovered/Resolved]
